FAERS Safety Report 16210796 (Version 1)
Quarter: 2019Q2

REPORT INFORMATION
  Report Type: Spontaneous
  Country: BR (occurrence: BR)
  Receive Date: 20190418
  Receipt Date: 20190418
  Transmission Date: 20190711
  Serious: Yes (Other)
  Sender: FDA-Public Use
  Company Number: BR-ROCHE-2305275

PATIENT
  Sex: Male

DRUGS (9)
  1. DOXORUBICIN [Suspect]
     Active Substance: DOXORUBICIN
     Indication: B-CELL LYMPHOMA
     Dosage: 4 CYCLES
     Route: 065
     Dates: start: 20181119, end: 20190102
  2. MESNA. [Suspect]
     Active Substance: MESNA
     Indication: B-CELL LYMPHOMA
     Dosage: 3 CYCLES
     Route: 065
     Dates: start: 20190123, end: 20190315
  3. CARBOPLATIN. [Suspect]
     Active Substance: CARBOPLATIN
     Indication: B-CELL LYMPHOMA
     Dosage: 3 CYCLES
     Route: 065
     Dates: start: 20190123, end: 20190315
  4. CYCLOPHOSPHAMIDE. [Suspect]
     Active Substance: CYCLOPHOSPHAMIDE
     Indication: B-CELL LYMPHOMA
     Dosage: 4 CYCLES
     Route: 065
     Dates: start: 20181119, end: 20190102
  5. PREDNISONE. [Suspect]
     Active Substance: PREDNISONE
     Indication: B-CELL LYMPHOMA
     Dosage: 4 CYCLES
     Route: 065
     Dates: start: 20181119, end: 20190102
  6. IFOSFAMIDE. [Suspect]
     Active Substance: IFOSFAMIDE
     Indication: B-CELL LYMPHOMA
     Dosage: 3 CYCLES
     Route: 065
     Dates: start: 20190123, end: 20190315
  7. ETOPOSIDE. [Suspect]
     Active Substance: ETOPOSIDE
     Indication: B-CELL LYMPHOMA
     Dosage: 3 CYCLES
     Route: 065
     Dates: start: 20190123, end: 20190315
  8. MABTHERA [Suspect]
     Active Substance: RITUXIMAB
     Indication: B-CELL LYMPHOMA
     Dosage: 4 CYCLES
     Route: 065
     Dates: start: 20181119, end: 20190102
  9. VINCRISTINE [Suspect]
     Active Substance: VINCRISTINE
     Indication: B-CELL LYMPHOMA
     Dosage: 4 CYCLES
     Route: 065
     Dates: start: 20181119, end: 20190102

REACTIONS (3)
  - Neck pain [Unknown]
  - Skin ulcer [Unknown]
  - Mass [Unknown]
